FAERS Safety Report 4978968-4 (Version None)
Quarter: 2006Q2

REPORT INFORMATION
  Report Type: 
  Country: None (occurrence: None)
  Receive Date: 20060417
  Receipt Date: 20060406
  Transmission Date: 20061013
  Serious: Yes (Hospitalization)
  Sender: FDA-Public Use
  Company Number: 2006048781

PATIENT
  Age: 85 Year
  Sex: Male

DRUGS (8)
  1. AMLODIPINE [Suspect]
     Indication: ILL-DEFINED DISORDER
     Dosage: 5 MG (5 MG, DAILY), ORAL
     Route: 048
  2. DIAMICRON (GLICLAZIDE) [Suspect]
     Indication: ILL-DEFINED DISORDER
     Dosage: 60 MG (60 MG, DAILY), ORAL
     Route: 048
  3. MIANSERIN (MIANSERIN) [Suspect]
     Indication: ILL-DEFINED DISORDER
     Dosage: 10 MG (10 MG, DAILY), ORAL
     Route: 048
  4. BIPRETERAX (INDAPAMIDE, PERINDOPRIL ERBUMINE) [Suspect]
     Indication: ILL-DEFINED DISORDER
     Dosage: 1DF (DAILY), ORAL
     Route: 048
     Dates: end: 20060130
  5. PLAVIX [Suspect]
     Indication: ILL-DEFINED DISORDER
     Dosage: 1 DF (DAILY), ORAL
     Route: 048
  6. BISOPROLOL FUMARATE [Suspect]
     Indication: ILL-DEFINED DISORDER
     Dosage: 10 MG (10 MG, DAILY), ORAL
     Route: 048
     Dates: end: 20060210
  7. BUFLOMEDIL [Concomitant]
  8. TIMOLOL MALEATE [Concomitant]

REACTIONS (1)
  - PEMPHIGOID [None]
